FAERS Safety Report 19242365 (Version 1)
Quarter: 2021Q2

REPORT INFORMATION
  Report Type: Spontaneous
  Country: CH (occurrence: CH)
  Receive Date: 20210510
  Receipt Date: 20210510
  Transmission Date: 20210717
  Serious: Yes (Hospitalization)
  Sender: FDA-Public Use
  Company Number: CH-ABBVIE-21K-151-3896789-00

PATIENT
  Sex: Male

DRUGS (1)
  1. VENCLYXTO [Suspect]
     Active Substance: VENETOCLAX
     Indication: CHRONIC LYMPHOCYTIC LEUKAEMIA
     Dosage: 4X100 IN THE MORNING
     Route: 048
     Dates: start: 20210324, end: 20210416

REACTIONS (4)
  - Hyperbilirubinaemia [Unknown]
  - Blood alkaline phosphatase increased [Unknown]
  - Cholestasis [Recovering/Resolving]
  - Gamma-glutamyltransferase increased [Unknown]
